FAERS Safety Report 5051475-9 (Version None)
Quarter: 2006Q2

REPORT INFORMATION
  Report Type: 
  Country: None (occurrence: None)
  Receive Date: 20060614
  Receipt Date: 20060504
  Transmission Date: 20061013
  Serious: Yes (Other)
  Sender: FDA-Public Use
  Company Number: 447036

PATIENT
  Age: 51 Year
  Sex: Female

DRUGS (4)
  1. BONIVA [Suspect]
     Indication: OSTEOPOROSIS
     Dosage: 150 MG  1 PER MONTH   ORAL
     Route: 048
     Dates: start: 20060503, end: 20060503
  2. CELEXA [Concomitant]
  3. PRILOSEC [Concomitant]
  4. CALCIUM (CALCIUM) [Concomitant]

REACTIONS (3)
  - ARTHRALGIA [None]
  - INFLUENZA LIKE ILLNESS [None]
  - PYREXIA [None]
